FAERS Safety Report 18452124 (Version 1)
Quarter: 2020Q4

REPORT INFORMATION
  Report Type: Spontaneous
  Country: CA (occurrence: CA)
  Receive Date: 20201101
  Receipt Date: 20201101
  Transmission Date: 20210114
  Serious: No
  Sender: FDA-Public Use
  Company Number: None

PATIENT
  Age: 7 Year
  Sex: Female
  Weight: 31.95 kg

DRUGS (1)
  1. SINGULAIR [Suspect]
     Active Substance: MONTELUKAST SODIUM
     Indication: RHINITIS ALLERGIC
     Dosage: ?          QUANTITY:1 TABLET(S);?
     Route: 048
     Dates: start: 20200401, end: 20201007

REACTIONS (8)
  - Anxiety [None]
  - Anger [None]
  - Weight increased [None]
  - Agitation [None]
  - Intrusive thoughts [None]
  - Depressed mood [None]
  - Thirst [None]
  - Hunger [None]

NARRATIVE: CASE EVENT DATE: 20200401
